FAERS Safety Report 19893104 (Version 7)
Quarter: 2024Q3

REPORT INFORMATION
  Report Type: Report from Study
  Country: CO (occurrence: CO)
  Receive Date: 20210929
  Receipt Date: 20240704
  Transmission Date: 20241017
  Serious: Yes (Hospitalization, Disabling, Other)
  Sender: SANOFI AVENTIS
  Company Number: CO-SA-SAC20210915001496

PATIENT
  Age: 56 Year
  Sex: Female

DRUGS (2)
  1. TERIFLUNOMIDE [Suspect]
     Active Substance: TERIFLUNOMIDE
     Indication: Multiple sclerosis
     Dosage: 14 MG, QD
     Route: 048
     Dates: start: 20171103, end: 2023
  2. VITAMINS [Concomitant]
     Active Substance: VITAMINS
     Indication: Spinal pain
     Dosage: UNK

REACTIONS (25)
  - Seizure [Recovered/Resolved]
  - Suicidal ideation [Recovering/Resolving]
  - Headache [Not Recovered/Not Resolved]
  - Mobility decreased [Not Recovered/Not Resolved]
  - Seizure [Unknown]
  - Neck pain [Not Recovered/Not Resolved]
  - Rash [Recovering/Resolving]
  - Mood altered [Recovering/Resolving]
  - Anxiety [Unknown]
  - Fear of falling [Unknown]
  - Crying [Not Recovered/Not Resolved]
  - Mental disorder [Not Recovered/Not Resolved]
  - Feeding disorder [Recovering/Resolving]
  - Discomfort [Recovered/Resolved]
  - Weight decreased [Recovering/Resolving]
  - Depression [Unknown]
  - Depressed mood [Not Recovered/Not Resolved]
  - Dizziness [Not Recovered/Not Resolved]
  - Intervertebral disc protrusion [Recovering/Resolving]
  - Influenza like illness [Recovering/Resolving]
  - Dermatitis allergic [Recovering/Resolving]
  - Oropharyngeal discomfort [Recovering/Resolving]
  - Dry skin [Recovering/Resolving]
  - Pruritus [Recovering/Resolving]
  - Sleep disorder due to a general medical condition [Recovering/Resolving]

NARRATIVE: CASE EVENT DATE: 20200301
